FAERS Safety Report 15740998 (Version 4)
Quarter: 2019Q1

REPORT INFORMATION
  Report Type: Report from Study
  Country: CA (occurrence: CA)
  Receive Date: 20181219
  Receipt Date: 20190220
  Transmission Date: 20190417
  Serious: No
  Sender: FDA-Public Use
  Company Number: CA-SA-2018SA004295

PATIENT
  Age: 25 Year
  Sex: Male

DRUGS (10)
  1. MARIJUANA [Concomitant]
     Active Substance: CANNABIS SATIVA SUBSP. INDICA TOP
     Indication: ANXIETY DISORDER
     Dosage: UNK UNK,QD
     Route: 055
     Dates: start: 2010
  2. ALEMTUZUMAB [Suspect]
     Active Substance: ALEMTUZUMAB
     Indication: MULTIPLE SCLEROSIS RELAPSE
     Dosage: 12 MG,QD
     Route: 041
     Dates: start: 20170911, end: 20170915
  3. ZANTAC [Concomitant]
     Active Substance: RANITIDINE HYDROCHLORIDE
     Indication: PROPHYLAXIS
     Dosage: 150 MG,QD
     Route: 048
     Dates: start: 20170911, end: 20170915
  4. ACICLOVIR [Concomitant]
     Active Substance: ACYCLOVIR
     Indication: PROPHYLAXIS
     Dosage: 200 MG,QD
     Route: 048
     Dates: start: 20170911, end: 20170915
  5. ERGOCALCIFEROL. [Concomitant]
     Active Substance: ERGOCALCIFEROL
     Indication: PROPHYLAXIS
     Dosage: 10000 IU,QD
     Route: 048
     Dates: start: 2016
  6. METHYLPREDNISOLONE. [Concomitant]
     Active Substance: METHYLPREDNISOLONE
     Indication: PROPHYLAXIS
     Dosage: 1 G,QD
     Route: 042
     Dates: start: 20170911, end: 20170914
  7. ALEMTUZUMAB [Suspect]
     Active Substance: ALEMTUZUMAB
     Dosage: 12 MG,QD
     Route: 041
     Dates: start: 20170919, end: 20170919
  8. ESCITALOPRAM [Concomitant]
     Active Substance: ESCITALOPRAM OXALATE
     Indication: DEPRESSION
     Dosage: 20 MG,QD
     Route: 048
     Dates: start: 2016
  9. ACETAMINOPHEN. [Concomitant]
     Active Substance: ACETAMINOPHEN
     Indication: PROPHYLAXIS
     Dosage: 1000 MG,QD
     Route: 048
     Dates: start: 20170911, end: 20170914
  10. REACTINE [CETIRIZINE HYDROCHLORIDE] [Concomitant]
     Active Substance: CETIRIZINE HYDROCHLORIDE
     Indication: PROPHYLAXIS
     Dosage: 5 MG,QD
     Route: 048
     Dates: start: 20170911, end: 20170915

REACTIONS (19)
  - Acne [Recovering/Resolving]
  - Abdominal discomfort [Recovered/Resolved]
  - Somnambulism [Recovered/Resolved]
  - Hot flush [Recovered/Resolved]
  - Pneumonia [Recovered/Resolved]
  - Platelet count decreased [Recovered/Resolved]
  - Nausea [Recovered/Resolved]
  - Fatigue [Recovered/Resolved]
  - Headache [Recovered/Resolved]
  - Hallucination, auditory [Recovered/Resolved]
  - Thrombocytopenia [Not Recovered/Not Resolved]
  - Rash [Recovered/Resolved]
  - Hot flush [Recovered/Resolved]
  - Non-cardiac chest pain [Recovered/Resolved]
  - Cough [Recovered/Resolved]
  - Hypothermia [Recovered/Resolved]
  - Oropharyngeal pain [Recovered/Resolved]
  - Headache [Recovered/Resolved]
  - Dysgeusia [Recovered/Resolved]

NARRATIVE: CASE EVENT DATE: 20170911
